FAERS Safety Report 18920178 (Version 1)
Quarter: 2021Q1

REPORT INFORMATION
  Report Type: Spontaneous
  Country: JP (occurrence: JP)
  Receive Date: 20210222
  Receipt Date: 20210222
  Transmission Date: 20210420
  Serious: Yes (Other)
  Sender: FDA-Public Use
  Company Number: JP-NOVAST LABORATORIES LTD.-2021NOV000018

PATIENT
  Age: 70 Year
  Sex: Female

DRUGS (2)
  1. FLUOROURACIL. [Suspect]
     Active Substance: FLUOROURACIL
     Indication: OESOPHAGEAL CARCINOMA
     Dosage: 800 MILLIGRAM/SQ. METER, FOR 5 DAYS
     Route: 065
  2. CISPLATIN. [Suspect]
     Active Substance: CISPLATIN
     Indication: OESOPHAGEAL CARCINOMA
     Dosage: 80 MILLIGRAM/SQ. METER FOR 1 DAY
     Route: 065

REACTIONS (7)
  - Herpes zoster [Unknown]
  - Leukopenia [Recovering/Resolving]
  - Cerebral haemorrhage [Unknown]
  - Decreased appetite [Recovered/Resolved]
  - Herpes zoster oticus [Recovered/Resolved]
  - Encephalitis [Unknown]
  - Nausea [Recovered/Resolved]
